FAERS Safety Report 13518858 (Version 2)
Quarter: 2017Q3

REPORT INFORMATION
  Report Type: Spontaneous
  Country: FR (occurrence: FR)
  Receive Date: 20170505
  Receipt Date: 20170725
  Transmission Date: 20171127
  Serious: Yes (Hospitalization)
  Sender: FDA-Public Use
  Company Number: FR-ASTRAZENECA-2017SE45678

PATIENT
  Age: 13338 Day
  Sex: Male
  Weight: 60 kg

DRUGS (13)
  1. ADALAT [Suspect]
     Active Substance: NIFEDIPINE
     Dosage: NON-AZ PRODUCT; 0.5 DF DAILY
     Route: 048
  2. GAVISCON [Suspect]
     Active Substance: ALUMINUM HYDROXIDE\MAGNESIUM CARBONATE
     Route: 065
     Dates: start: 20170201
  3. MOVICOL [Suspect]
     Active Substance: POLYETHYLENE GLYCOL 3350\POTASSIUM CHLORIDE\SODIUM BICARBONATE\SODIUM CHLORIDE
     Dosage: ONE SACHET A DAY
     Route: 048
     Dates: start: 20170203
  4. DOLIPRANE [Suspect]
     Active Substance: ACETAMINOPHEN
     Route: 065
  5. DOLIPRANE [Suspect]
     Active Substance: ACETAMINOPHEN
     Route: 048
     Dates: start: 20170203
  6. AMIKACIN [Suspect]
     Active Substance: AMIKACIN
     Route: 042
     Dates: start: 20170214, end: 20170218
  7. DIFFU K [Suspect]
     Active Substance: POTASSIUM CHLORIDE
     Route: 048
     Dates: start: 20170203
  8. INEXIUM [Suspect]
     Active Substance: ESOMEPRAZOLE
     Route: 048
     Dates: start: 20170207
  9. RIFATER [Suspect]
     Active Substance: ISONIAZID\PYRAZINAMIDE\RIFAMPIN
     Indication: TUBERCULOSIS
     Route: 065
     Dates: start: 20170128, end: 20170218
  10. ANAUSIN METOCLOPRAMIDE [Suspect]
     Active Substance: METOCLOPRAMIDE HYDROCHLORIDE
     Route: 065
     Dates: start: 20170131
  11. HALDOL [Suspect]
     Active Substance: HALOPERIDOL
     Dosage: 2MG/ML 20 DROPS A DAY
     Route: 065
     Dates: start: 20170201, end: 20170223
  12. SPECIAFOLDINE [Suspect]
     Active Substance: FOLIC ACID
     Route: 048
  13. ETHAMBUTOL [Suspect]
     Active Substance: ETHAMBUTOL HYDROCHLORIDE
     Indication: TUBERCULOSIS
     Route: 065
     Dates: start: 20170128, end: 20170218

REACTIONS (4)
  - Dermatitis bullous [Recovered/Resolved]
  - Epistaxis [Recovered/Resolved]
  - Platelet count decreased [Recovered/Resolved]
  - Thrombocytopenia [Recovered/Resolved]

NARRATIVE: CASE EVENT DATE: 20170213
